FAERS Safety Report 24232922 (Version 1)
Quarter: 2024Q3

REPORT INFORMATION
  Report Type: Spontaneous
  Country: US (occurrence: US)
  Receive Date: 20240821
  Receipt Date: 20240821
  Transmission Date: 20241016
  Serious: No
  Sender: INCYTE
  Company Number: US-INCYTE CORPORATION-2024IN008445

PATIENT

DRUGS (2)
  1. JAKAFI [Suspect]
     Active Substance: RUXOLITINIB
     Indication: Blood osmolarity decreased
     Dosage: 5 MILLIGRAM, BID
     Route: 048
     Dates: start: 202307
  2. JAKAFI [Suspect]
     Active Substance: RUXOLITINIB
     Indication: Hyponatraemia

REACTIONS (4)
  - Nausea [Unknown]
  - Dizziness [Unknown]
  - Fatigue [Unknown]
  - Off label use [Unknown]
